FAERS Safety Report 5869413-5 (Version None)
Quarter: 2008Q3

REPORT INFORMATION
  Report Type: 
  Country: None (occurrence: None)
  Receive Date: 20080828
  Receipt Date: 20080818
  Transmission Date: 20090109
  Serious: Yes (Other)
  Sender: FDA-Public Use
  Company Number: 1000000669

PATIENT

DRUGS (1)
  1. DINOPROSTONE (DINOPROSTONE) (10 MILLIGRAM, VAGINAL INSERT) [Suspect]
     Dosage: (10 MG, ONCE) ,TRANSPLACENTAL
     Route: 064
     Dates: start: 20080507, end: 20080507

REACTIONS (4)
  - APGAR SCORE LOW [None]
  - BLOOD PH DECREASED [None]
  - MATERNAL DRUGS AFFECTING FOETUS [None]
  - NEONATAL DISORDER [None]
